FAERS Safety Report 12613707 (Version 1)
Quarter: 2016Q3

REPORT INFORMATION
  Report Type: Spontaneous
  Country: US (occurrence: None)
  Receive Date: 20160801
  Receipt Date: 20160801
  Transmission Date: 20161109
  Serious: No
  Sender: FDA-Public Use
  Company Number: None

PATIENT
  Age: 39 Year
  Sex: Female
  Weight: 74.84 kg

DRUGS (1)
  1. EQUATE ANTACID MAXIMUM STRENGTH [Suspect]
     Active Substance: ALUMINUM HYDROXIDE\DIMETHICONE\MAGNESIUM HYDROXIDE
     Indication: GASTROOESOPHAGEAL REFLUX DISEASE
     Route: 048
     Dates: start: 20160731, end: 20160731

REACTIONS (3)
  - Throat irritation [None]
  - Chest pain [None]
  - Oral discomfort [None]

NARRATIVE: CASE EVENT DATE: 20160731
